FAERS Safety Report 9661358 (Version 1)
Quarter: 2013Q4

REPORT INFORMATION
  Report Type: Spontaneous
  Country: US (occurrence: None)
  Receive Date: 20131030
  Receipt Date: 20131030
  Transmission Date: 20140711
  Serious: Yes (Other)
  Sender: FDA-Public Use
  Company Number: COL_14556_2013

PATIENT
  Age: 43 Year
  Sex: Female

DRUGS (1)
  1. COLGATE TARTER CONTROL [Suspect]
     Indication: DENTAL CARIES
     Dosage: (FILLED HEAD OF TOOTHBRUSH/TID/ORAL)
     Route: 048
     Dates: start: 201309, end: 20131022

REACTIONS (2)
  - Mouth injury [None]
  - Tooth fracture [None]
